FAERS Safety Report 23428553 (Version 1)
Quarter: 2024Q1

REPORT INFORMATION
  Report Type: Spontaneous
  Country: ES (occurrence: ES)
  Receive Date: 20240122
  Receipt Date: 20240122
  Transmission Date: 20240410
  Serious: Yes (Other)
  Sender: FDA-Public Use
  Company Number: ES-TEVA-VS-3143347

PATIENT
  Age: 19 Year

DRUGS (3)
  1. CETIRIZINE [Suspect]
     Active Substance: CETIRIZINE HYDROCHLORIDE
     Indication: Seasonal allergy
     Route: 048
  2. LORATADINE [Suspect]
     Active Substance: LORATADINE
     Indication: Seasonal allergy
     Route: 048
  3. EBASTINE [Concomitant]
     Active Substance: EBASTINE
     Indication: Seasonal allergy
     Route: 065

REACTIONS (3)
  - Type IV hypersensitivity reaction [Recovered/Resolved]
  - Skin lesion [Recovered/Resolved]
  - Rash maculo-papular [Recovered/Resolved]
